FAERS Safety Report 19167880 (Version 2)
Quarter: 2021Q3

REPORT INFORMATION
  Report Type: Spontaneous
  Country: US (occurrence: US)
  Receive Date: 20210422
  Receipt Date: 20210729
  Transmission Date: 20211014
  Serious: Yes (Other)
  Sender: FDA-Public Use
  Company Number: US-APOTEX-2021AP010009

PATIENT
  Age: 32 Year
  Sex: Female

DRUGS (1)
  1. SANDOSTATIN LAR DEPOT [Concomitant]
     Active Substance: OCTREOTIDE ACETATE
     Indication: PANCREATITIS CHRONIC
     Dosage: 20 MILLIGRAM (EVERY 4 WEEKS)
     Route: 030

REACTIONS (1)
  - Uterine haemorrhage [Recovered/Resolved]
